FAERS Safety Report 6651519-4 (Version None)
Quarter: 2010Q1

REPORT INFORMATION
  Report Type: 
  Country: None (occurrence: None)
  Receive Date: 20100325
  Receipt Date: 20100316
  Transmission Date: 20100710
  Serious: Yes (Hospitalization)
  Sender: FDA-Public Use
  Company Number: A0789817A

PATIENT
  Age: 68 Year
  Sex: Female
  Weight: 98.2 kg

DRUGS (9)
  1. AVANDIA [Suspect]
     Route: 048
     Dates: start: 20030801, end: 20070601
  2. AVANDAMET [Suspect]
     Route: 048
     Dates: start: 20070501, end: 20070501
  3. LASIX [Concomitant]
  4. GLIPIZIDE [Concomitant]
  5. MOTRIN [Concomitant]
  6. METFORMIN HCL [Concomitant]
  7. AVALIDE [Concomitant]
  8. XANAX [Concomitant]
  9. NORVASC [Concomitant]

REACTIONS (6)
  - ASTHENIA [None]
  - CARDIAC FAILURE CONGESTIVE [None]
  - CEREBROVASCULAR ACCIDENT [None]
  - MYOCARDIAL ISCHAEMIA [None]
  - OEDEMA PERIPHERAL [None]
  - URINARY TRACT INFECTION [None]
